FAERS Safety Report 7685735-X (Version None)
Quarter: 2011Q3

REPORT INFORMATION
  Report Type: 
  Country: None (occurrence: None)
  Receive Date: 20110815
  Receipt Date: 20110815
  Transmission Date: 20111222
  Serious: Yes (Hospitalization, Disabling)
  Sender: FDA-Public Use
  Company Number: None

PATIENT
  Age: 47 Year
  Sex: Female
  Weight: 92.532 kg

DRUGS (3)
  1. ZOSYN [Concomitant]
     Dosage: 3.375G
     Route: 041
     Dates: start: 20110727, end: 20110807
  2. VANCOMYCIN [Suspect]
     Indication: COLON OPERATION
     Dosage: 1.5G LOAD, THEN 1.25G
     Route: 041
     Dates: start: 20110727, end: 20110801
  3. VANCOMYCIN [Suspect]
     Indication: SEPSIS
     Dosage: 1.5G LOAD, THEN 1.25G
     Route: 041
     Dates: start: 20110727, end: 20110801

REACTIONS (3)
  - NEPHROPATHY TOXIC [None]
  - RENAL FAILURE ACUTE [None]
  - DIALYSIS [None]
